FAERS Safety Report 14318125 (Version 2)
Quarter: 2018Q1

REPORT INFORMATION
  Report Type: Report from Study
  Country: None (occurrence: US)
  Receive Date: 20171222
  Receipt Date: 20180227
  Transmission Date: 20180509
  Serious: Yes (Hospitalization)
  Sender: FDA-Public Use
  Company Number: US-ABBVIE-17K-163-2200920-00

PATIENT
  Sex: Male

DRUGS (2)
  1. HUMIRA [Suspect]
     Active Substance: ADALIMUMAB
     Indication: PSORIASIS
     Route: 058
     Dates: end: 201610
  2. HUMIRA [Suspect]
     Active Substance: ADALIMUMAB
     Indication: RHEUMATOID ARTHRITIS
     Route: 058
     Dates: end: 201712

REACTIONS (8)
  - Cellulitis [Not Recovered/Not Resolved]
  - Skin abrasion [Unknown]
  - Bladder disorder [Unknown]
  - Psoriasis [Unknown]
  - Fall [Unknown]
  - Wound infection [Unknown]
  - Impaired healing [Unknown]
  - Psoriatic arthropathy [Unknown]
